FAERS Safety Report 4287616-0 (Version None)
Quarter: 2004Q1

REPORT INFORMATION
  Report Type: 
  Country: None (occurrence: None)
  Receive Date: 20040205
  Receipt Date: 20040107
  Transmission Date: 20041129
  Serious: Yes (Death)
  Sender: FDA-Public Use
  Company Number: A02200400086

PATIENT
  Age: 37 Year
  Sex: Female

DRUGS (4)
  1. STILNOX - (ZOLPIDEM) - TABLET - 10 MG [Suspect]
     Indication: OVERDOSE
     Dosage: 140 MG ONCE
     Route: 048
     Dates: start: 20031213, end: 20031213
  2. EQUANIL [Suspect]
     Indication: OVERDOSE
     Dosage: 61 G ONCE,
     Route: 048
     Dates: start: 20031213, end: 20031213
  3. TRANXENE [Suspect]
     Indication: OVERDOSE
     Dosage: 3000 MG ONCE
     Route: 048
     Dates: start: 20031213, end: 20031213
  4. THERALENE  (ALIMEMAZINE TARTRATE) DROPS- 1 MG [Suspect]
     Indication: OVERDOSE
     Dosage: 1200 MG ONCE
     Route: 048
     Dates: start: 20031213, end: 20031213

REACTIONS (5)
  - CARDIAC ARREST [None]
  - CARDIOGENIC SHOCK [None]
  - COMA [None]
  - MULTIPLE DRUG OVERDOSE [None]
  - PARALYSIS [None]
